FAERS Safety Report 16194040 (Version 2)
Quarter: 2020Q3

REPORT INFORMATION
  Report Type: Spontaneous
  Country: US (occurrence: US)
  Receive Date: 20190413
  Receipt Date: 20200713
  Transmission Date: 20201102
  Serious: Yes (Hospitalization)
  Sender: FDA-Public Use
  Company Number: US-JNJFOC-20190345392

PATIENT
  Age: 63 Year
  Sex: Female

DRUGS (6)
  1. ALEVE [Suspect]
     Active Substance: NAPROXEN SODIUM
     Indication: ARTHRALGIA
     Route: 065
     Dates: end: 20150818
  2. ALEVE [Suspect]
     Active Substance: NAPROXEN SODIUM
     Indication: BACK PAIN
  3. XARELTO [Suspect]
     Active Substance: RIVAROXABAN
     Indication: ATRIAL FIBRILLATION
     Route: 048
     Dates: start: 20150821, end: 201509
  4. ASPIRIN. [Suspect]
     Active Substance: ASPIRIN
     Indication: ATRIAL FIBRILLATION
     Dosage: DELAYED RELEASE
     Dates: end: 20150818
  5. NABUMETONE. [Suspect]
     Active Substance: NABUMETONE
     Indication: ARTHRALGIA
     Route: 048
     Dates: end: 20150818
  6. XARELTO [Suspect]
     Active Substance: RIVAROXABAN
     Indication: CEREBROVASCULAR ACCIDENT PROPHYLAXIS
     Route: 048
     Dates: start: 201406, end: 20150818

REACTIONS (1)
  - Peptic ulcer haemorrhage [Recovered/Resolved]

NARRATIVE: CASE EVENT DATE: 20150815
